FAERS Safety Report 14104256 (Version 1)
Quarter: 2017Q4

REPORT INFORMATION
  Report Type: Spontaneous
  Country: GR (occurrence: GR)
  Receive Date: 20171018
  Receipt Date: 20171018
  Transmission Date: 20180321
  Serious: Yes (Other)
  Sender: FDA-Public Use
  Company Number: GR-AMGEN-GRCSP2017140413

PATIENT
  Age: 75 Year
  Sex: Male
  Weight: 95 kg

DRUGS (2)
  1. VECTIBIX [Suspect]
     Active Substance: PANITUMUMAB
     Dosage: 4 MG/KG, UNK
     Route: 042
     Dates: start: 20170927
  2. VECTIBIX [Suspect]
     Active Substance: PANITUMUMAB
     Indication: COLORECTAL CANCER METASTATIC
     Dosage: 6 MG/KG, UNK
     Route: 042
     Dates: start: 20160726

REACTIONS (10)
  - Ectropion [Not Recovered/Not Resolved]
  - Conjunctivitis [Not Recovered/Not Resolved]
  - Skin oedema [Unknown]
  - Coronary artery disease [Not Recovered/Not Resolved]
  - Aortic valve replacement [Unknown]
  - Cerebrovascular accident [Unknown]
  - Rash [Unknown]
  - Type 1 diabetes mellitus [Not Recovered/Not Resolved]
  - Cardiac failure [Not Recovered/Not Resolved]
  - Arterial graft [Unknown]

NARRATIVE: CASE EVENT DATE: 20161003
